FAERS Safety Report 22214692 (Version 1)
Quarter: 2023Q2

REPORT INFORMATION
  Report Type: Spontaneous
  Country: CA (occurrence: CA)
  Receive Date: 20230415
  Receipt Date: 20230415
  Transmission Date: 20230722
  Serious: Yes (Other)
  Sender: FDA-Public Use
  Company Number: CA-CELLTRION INC.-2021CA010434

PATIENT

DRUGS (15)
  1. INFLECTRA [Suspect]
     Active Substance: INFLIXIMAB-DYYB
     Indication: Crohn^s disease
     Dosage: 300 MG 0,2,6 WEEKS THEN MAINTENANCE AT EVERY 8 WEEKS
     Route: 042
     Dates: start: 20210415
  2. INFLECTRA [Suspect]
     Active Substance: INFLIXIMAB-DYYB
     Dosage: 300 MG 0,2,6 WEEKS THEN MAINTENANCE AT EVERY 8 WEEKS
     Route: 042
     Dates: start: 20210430
  3. INFLECTRA [Suspect]
     Active Substance: INFLIXIMAB-DYYB
     Dosage: 300 MG 0,2,6 WEEKS THEN MAINTENANCE AT EVERY 8 WEEKS
     Route: 042
     Dates: start: 20210528
  4. INFLECTRA [Suspect]
     Active Substance: INFLIXIMAB-DYYB
     Dosage: 300 MG 0,2,6 WEEKS THEN MAINTENANCE AT EVERY 8 WEEKS
     Route: 042
     Dates: start: 20210723
  5. INFLECTRA [Suspect]
     Active Substance: INFLIXIMAB-DYYB
     Dosage: 300 MG 0,2,6 WEEKS THEN MAINTENANCE AT EVERY 8 WEEKS
     Route: 042
     Dates: start: 20210917
  6. INFLECTRA [Suspect]
     Active Substance: INFLIXIMAB-DYYB
     Dosage: 300 MG 0,2,6 WEEKS THEN MAINTENANCE AT EVERY 8 WEEKS
     Route: 042
     Dates: start: 20220303
  7. INFLECTRA [Suspect]
     Active Substance: INFLIXIMAB-DYYB
     Dosage: 300 MG 0,2,6 WEEKS THEN MAINTENANCE AT EVERY 8 WEEKS
     Route: 042
     Dates: start: 20220429
  8. INFLECTRA [Suspect]
     Active Substance: INFLIXIMAB-DYYB
     Dosage: 300 MG 0,2,6 WEEKS THEN MAINTENANCE AT EVERY 8 WEEKS
     Route: 042
     Dates: start: 20220624
  9. INFLECTRA [Suspect]
     Active Substance: INFLIXIMAB-DYYB
     Dosage: 300 MG 0,2,6 WEEKS THEN MAINTENANCE AT EVERY 8 WEEKS
     Route: 042
     Dates: start: 20220826
  10. INFLECTRA [Suspect]
     Active Substance: INFLIXIMAB-DYYB
     Dosage: 300 MG 0,2,6 WEEKS THEN MAINTENANCE AT EVERY 8 WEEKS
     Route: 042
     Dates: start: 20221021
  11. INFLECTRA [Suspect]
     Active Substance: INFLIXIMAB-DYYB
     Dosage: 300 MG 0,2,6 WEEKS THEN MAINTENANCE AT EVERY 8 WEEKS
     Route: 042
     Dates: start: 20230210
  12. INFLECTRA [Suspect]
     Active Substance: INFLIXIMAB-DYYB
     Dosage: 300MG, EVERY 8 WEEKS
     Route: 042
     Dates: start: 20230406
  13. ALOE VERA JUICE [Concomitant]
     Dosage: UNK
  14. PROBIOTICS NOS [Concomitant]
     Active Substance: PROBIOTICS NOS
     Dosage: UNK
  15. ELM [Concomitant]
     Active Substance: ELM
     Dosage: UNK

REACTIONS (9)
  - Mallet finger [Recovering/Resolving]
  - Off label use [Unknown]
  - Off label use [Unknown]
  - Intentional product use issue [Unknown]
  - Urticaria [Recovered/Resolved]
  - Weight increased [Unknown]
  - Rash [Unknown]
  - Skin hyperpigmentation [Unknown]
  - Weight decreased [Unknown]

NARRATIVE: CASE EVENT DATE: 20210101
